FAERS Safety Report 7029267-0 (Version None)
Quarter: 2010Q4

REPORT INFORMATION
  Report Type: 
  Country: None (occurrence: None)
  Receive Date: 20101005
  Receipt Date: 20100920
  Transmission Date: 20110411
  Serious: Yes (Other)
  Sender: FDA-Public Use
  Company Number: PHEH2006US15272

PATIENT
  Sex: Male

DRUGS (6)
  1. AREDIA [Suspect]
  2. ZOMETA [Suspect]
     Indication: MULTIPLE MYELOMA
  3. AMBIEN [Concomitant]
  4. NEURONTIN [Concomitant]
  5. AMITRIPTYLINE [Concomitant]
  6. TRAZODONE HCL [Concomitant]

REACTIONS (19)
  - ANXIETY [None]
  - ARTHRALGIA [None]
  - BURSITIS [None]
  - DECREASED INTEREST [None]
  - FASCIITIS [None]
  - GAIT DISTURBANCE [None]
  - GENERAL PHYSICAL HEALTH DETERIORATION [None]
  - JOINT RANGE OF MOTION DECREASED [None]
  - JOINT SWELLING [None]
  - MENISCUS LESION [None]
  - NEURITIS [None]
  - OEDEMA PERIPHERAL [None]
  - OSTEOARTHRITIS [None]
  - OSTEONECROSIS OF JAW [None]
  - PAIN [None]
  - POST CONCUSSION SYNDROME [None]
  - POST THROMBOTIC SYNDROME [None]
  - SINUS TARSI SYNDROME [None]
  - TENDONITIS [None]
